FAERS Safety Report 6768030-2 (Version None)
Quarter: 2010Q2

REPORT INFORMATION
  Report Type: 
  Country: None (occurrence: None)
  Receive Date: 20100614
  Receipt Date: 20100604
  Transmission Date: 20101027
  Serious: Yes (Other)
  Sender: FDA-Public Use
  Company Number: B0645682A

PATIENT
  Sex: Male

DRUGS (7)
  1. AVOLVE [Suspect]
     Indication: BENIGN PROSTATIC HYPERPLASIA
     Dosage: .5MG PER DAY
     Route: 048
     Dates: start: 20100330
  2. HARNAL [Suspect]
     Indication: DRUG USE FOR UNKNOWN INDICATION
     Route: 048
     Dates: start: 20100330
  3. PANALDINE [Concomitant]
     Route: 048
  4. NIVADIL [Concomitant]
     Route: 048
  5. VASOLAN [Concomitant]
     Route: 048
  6. CEROCRAL [Concomitant]
     Route: 048
  7. BLOPRESS [Concomitant]
     Route: 048

REACTIONS (1)
  - URINARY RETENTION [None]
